FAERS Safety Report 21686572 (Version 1)
Quarter: 2022Q4

REPORT INFORMATION
  Report Type: Spontaneous
  Country: US (occurrence: US)
  Receive Date: 20221206
  Receipt Date: 20221206
  Transmission Date: 20230113
  Serious: Yes (Hospitalization)
  Sender: FDA-Public Use
  Company Number: US-MACLEODS PHARMACEUTICALS US LTD-MAC2022038541

PATIENT

DRUGS (1)
  1. OLANZAPINE [Suspect]
     Active Substance: OLANZAPINE
     Indication: Schizophrenia
     Dosage: 20 MILLIGRAM, QD, AT BEDTIME
     Route: 048

REACTIONS (4)
  - Feeling abnormal [Recovered/Resolved]
  - Sedation [Unknown]
  - Treatment noncompliance [Unknown]
  - Constipation [Recovered/Resolved]
